FAERS Safety Report 5039899-7 (Version None)
Quarter: 2006Q2

REPORT INFORMATION
  Report Type: 
  Country: None (occurrence: None)
  Receive Date: 20060630
  Receipt Date: 20060529
  Transmission Date: 20061013
  Serious: Yes (Life-Threatening, Hospitalization)
  Sender: FDA-Public Use
  Company Number: PHRM2006FR01680

PATIENT
  Age: 80 Year
  Sex: Female
  Weight: 78 kg

DRUGS (8)
  1. STAGID [Concomitant]
     Indication: DIABETES MELLITUS
     Dosage: 700 MG DAILY
  2. ALDACTONE [Concomitant]
     Indication: HYPERTENSION
     Dosage: 75 MG DAILY
  3. LIPANTHYL [Concomitant]
     Indication: DYSLIPIDAEMIA
  4. ASPIRIN [Concomitant]
     Indication: PROPHYLAXIS
     Dosage: 75 MG
  5. ALLOPURINOL [Concomitant]
     Indication: HYPERURICAEMIA
  6. LASILIX [Concomitant]
     Indication: PROPHYLAXIS
     Dates: start: 20050110
  7. NOVONORM [Concomitant]
     Indication: DIABETES MELLITUS
     Dates: start: 20050110
  8. GLEEVEC [Suspect]
     Indication: CHRONIC MYELOID LEUKAEMIA
     Dosage: 400 MG DAILY
     Route: 048
     Dates: start: 20030113

REACTIONS (4)
  - CHOLECYSTECTOMY [None]
  - CHOLECYSTITIS CHRONIC [None]
  - PANCREATIC CARCINOMA METASTATIC [None]
  - SURGERY [None]
